FAERS Safety Report 8801397 (Version 2)
Quarter: 2012Q4

REPORT INFORMATION
  Report Type: 
  Country: CH (occurrence: CH)
  Receive Date: 20120921
  Receipt Date: 20120928
  Transmission Date: 20130627
  Serious: Yes (Hospitalization, Other)
  Sender: FDA-Public Use
  Company Number: CH-RANBAXY-2012RR-60319

PATIENT
  Age: 78 Year
  Sex: Male

DRUGS (3)
  1. CIPROFLOXACIN [Suspect]
     Indication: URINARY TRACT INFECTION
     Dosage: UNK
     Route: 065
  2. CO-TRIMOXAZOLE [Suspect]
     Indication: URINARY TRACT INFECTION
     Dosage: UNK
     Route: 065
  3. OCTREOTIDE [Suspect]
     Indication: ACROMEGALY
     Dosage: 10 mg every 6 weeks
     Route: 065

REACTIONS (6)
  - Renal failure acute [Recovering/Resolving]
  - Hyperoxaluria [Recovered/Resolved]
  - Nephropathy [Recovering/Resolving]
  - Kidney fibrosis [Unknown]
  - Weight decreased [Unknown]
  - Nephritis allergic [Unknown]
